FAERS Safety Report 4467630-2 (Version None)
Quarter: 2004Q4

REPORT INFORMATION
  Report Type: 
  Country: None (occurrence: None)
  Receive Date: 20041004
  Receipt Date: 20041004
  Transmission Date: 20050328
  Serious: Yes (Other)
  Sender: FDA-Public Use
  Company Number: None

PATIENT
  Age: 84 Year
  Sex: Female

DRUGS (2)
  1. ZESTRIL [Suspect]
     Dosage: 2.5 MG ORAL
     Route: 048
     Dates: start: 20030301
  2. XANAX [Suspect]
     Indication: ANXIETY
     Dosage: 0.5 MG ORAL
     Route: 048
     Dates: start: 20030301

REACTIONS (2)
  - DIZZINESS [None]
  - FATIGUE [None]
